FAERS Safety Report 5175231-6 (Version None)
Quarter: 2006Q4

REPORT INFORMATION
  Report Type: 
  Country: None (occurrence: None)
  Receive Date: 20061206
  Receipt Date: 20061120
  Transmission Date: 20070319
  Serious: Yes (Other)
  Sender: FDA-Public Use
  Company Number: DE-2006-036597

PATIENT
  Sex: Female

DRUGS (1)
  1. BETAFERON(INTERFERON BETA-1B) INJECTION, 250UG [Suspect]
     Dosage: SUBCUTANEOUS
     Route: 058
     Dates: start: 20060401

REACTIONS (1)
  - AUTOIMMUNE THYROIDITIS [None]
